FAERS Safety Report 13718610 (Version 5)
Quarter: 2017Q3

REPORT INFORMATION
  Report Type: Spontaneous
  Country: FR (occurrence: FR)
  Receive Date: 20170705
  Receipt Date: 20170725
  Transmission Date: 20171127
  Serious: Yes (Hospitalization)
  Sender: FDA-Public Use
  Company Number: FR-PFIZER INC-2017287185

PATIENT
  Age: 64 Year
  Sex: Male

DRUGS (7)
  1. BISOCE [Suspect]
     Active Substance: BISOPROLOL
     Indication: ATRIAL FIBRILLATION
     Dosage: 5 MG, 1X/DAY
     Route: 048
     Dates: start: 201703
  2. LANSOPRAZOLE. [Concomitant]
     Active Substance: LANSOPRAZOLE
     Dosage: 15 MG, 1X/DAY
  3. ELIQUIS [Suspect]
     Active Substance: APIXABAN
     Indication: CEREBROVASCULAR ACCIDENT PROPHYLAXIS
     Dosage: 5 MG, 2X/DAY
     Route: 048
     Dates: start: 201703
  4. CORDARONE [Suspect]
     Active Substance: AMIODARONE HYDROCHLORIDE
     Indication: ATRIAL FIBRILLATION
     Dosage: 200 MG, 1X/DAY (5 DAYS A WEEK)
     Route: 048
     Dates: start: 201703
  5. INSPRA [Suspect]
     Active Substance: EPLERENONE
     Indication: ATRIAL FIBRILLATION
     Dosage: 25 MG, 1X/DAY
     Route: 048
     Dates: start: 201703
  6. BISOCE [Suspect]
     Active Substance: BISOPROLOL
     Dosage: UNK
     Route: 048
  7. XANAX [Concomitant]
     Active Substance: ALPRAZOLAM
     Dosage: 0.25 MG, 1X/DAY

REACTIONS (2)
  - Psoriasis [Recovering/Resolving]
  - Palmoplantar keratoderma [Recovering/Resolving]

NARRATIVE: CASE EVENT DATE: 20170612
